FAERS Safety Report 24422531 (Version 2)
Quarter: 2024Q4

REPORT INFORMATION
  Report Type: Report from Study
  Country: US (occurrence: US)
  Receive Date: 20241010
  Receipt Date: 20241026
  Transmission Date: 20250115
  Serious: Yes (Other)
  Sender: TEVA
  Company Number: US-TEVA-VS-3251470

PATIENT
  Age: 37 Year
  Sex: Male

DRUGS (1)
  1. FENTANYL [Suspect]
     Active Substance: FENTANYL
     Indication: Product used for unknown indication
     Route: 065

REACTIONS (6)
  - Toxicity to various agents [Unknown]
  - Gait disturbance [Unknown]
  - Nervous system disorder [Unknown]
  - Somnambulism [Unknown]
  - Dysarthria [Unknown]
  - Road traffic accident [Unknown]
